FAERS Safety Report 4753802-6 (Version None)
Quarter: 2005Q3

REPORT INFORMATION
  Report Type: 
  Country: None (occurrence: None)
  Receive Date: 20050823
  Receipt Date: 20050712
  Transmission Date: 20060218
  Serious: No
  Sender: FDA-Public Use
  Company Number: 215591

PATIENT
  Age: 47 Year
  Sex: Male
  Weight: 90.7 kg

DRUGS (9)
  1. RAPTIVA [Suspect]
     Indication: PSORIASIS
     Dosage: 0.9ML 1/WEEK SUBCUTANEOUS
     Route: 058
     Dates: start: 20050524
  2. HEART MEDICATION NOS [Concomitant]
  3. AVANDIA [Concomitant]
  4. METFORMIN [Concomitant]
  5. COREG [Concomitant]
  6. ALTACE [Concomitant]
  7. IMDUR [Concomitant]
  8. LIPITOR [Concomitant]
  9. PROTONIX [Concomitant]

REACTIONS (1)
  - PRURITUS [None]
